FAERS Safety Report 10486033 (Version 3)
Quarter: 2014Q4

REPORT INFORMATION
  Report Type: Spontaneous
  Country: DE (occurrence: DE)
  Receive Date: 20141001
  Receipt Date: 20141103
  Transmission Date: 20150528
  Serious: Yes (Hospitalization, Other)
  Sender: FDA-Public Use
  Company Number: DE-AMGEN-DEUSP2014067968

PATIENT
  Age: 31 Year
  Sex: Female
  Weight: 45 kg

DRUGS (9)
  1. PROLIA [Suspect]
     Active Substance: DENOSUMAB
     Indication: OSTEOPOROSIS
     Dosage: 60 MG, Q6MO
     Route: 058
     Dates: start: 20140723
  2. CIPRAMIL                           /00582602/ [Concomitant]
     Active Substance: CITALOPRAM HYDROBROMIDE
     Dosage: 10 MG, QD
  3. METHIONINE [Concomitant]
     Active Substance: METHIONINE
     Dosage: UNK
  4. IRON [Concomitant]
     Active Substance: IRON
     Dosage: UNK
  5. OESTROGEN [Concomitant]
     Indication: PREMATURE MENOPAUSE
     Dosage: UNK
  6. MAGNESIUM [Concomitant]
     Active Substance: MAGNESIUM
     Dosage: UNK
  7. DEKRISTOL [Concomitant]
     Active Substance: CHOLECALCIFEROL
     Dosage: 20000 IU, Q2WK
  8. CALCIUM [Concomitant]
     Active Substance: CALCIUM
     Dosage: 500 MG, BID
  9. CALCIUM D3                         /00944201/ [Concomitant]
     Active Substance: CALCIUM\CHOLECALCIFEROL
     Dosage: UNK

REACTIONS (46)
  - Dyspnoea [Recovering/Resolving]
  - Mouth haemorrhage [Unknown]
  - Throat irritation [Recovered/Resolved]
  - Hypotension [Unknown]
  - Dry skin [Not Recovered/Not Resolved]
  - Neurodermatitis [Not Recovered/Not Resolved]
  - Photosensitivity reaction [Not Recovered/Not Resolved]
  - Urticaria [Recovering/Resolving]
  - Angioedema [Unknown]
  - Arthralgia [Unknown]
  - Influenza like illness [Unknown]
  - Hyperlipasaemia [Unknown]
  - Swelling face [Unknown]
  - Tachycardia [Unknown]
  - Erythema [Recovering/Resolving]
  - Electrolyte imbalance [Recovered/Resolved]
  - Cystitis [Unknown]
  - Osteomalacia [Unknown]
  - Tenderness [Unknown]
  - Discomfort [Not Recovered/Not Resolved]
  - Skin disorder [Unknown]
  - Paraesthesia [Recovered/Resolved]
  - Eczema [Unknown]
  - Pruritus [Not Recovered/Not Resolved]
  - Burning sensation [Unknown]
  - Pyrexia [Recovered/Resolved]
  - Myalgia [Unknown]
  - Hypercalcaemia [Recovered/Resolved]
  - Laceration [Unknown]
  - Anaphylactic reaction [Unknown]
  - Blister [Unknown]
  - Swelling [Unknown]
  - Erythema migrans [Unknown]
  - Pain in jaw [Unknown]
  - Sensation of foreign body [Recovered/Resolved]
  - Hypersensitivity [Recovering/Resolving]
  - Skin exfoliation [Unknown]
  - Polyneuropathy [Unknown]
  - Blood cortisol abnormal [Unknown]
  - Mouth ulceration [Unknown]
  - Feeling abnormal [Not Recovered/Not Resolved]
  - Inflammation [Recovering/Resolving]
  - Stridor [Recovered/Resolved]
  - Palpitations [Recovered/Resolved]
  - Pain in extremity [Unknown]
  - Bone pain [Unknown]

NARRATIVE: CASE EVENT DATE: 201407
